FAERS Safety Report 11815235 (Version 3)
Quarter: 2016Q2

REPORT INFORMATION
  Report Type: Spontaneous
  Country: US (occurrence: US)
  Receive Date: 20151209
  Receipt Date: 20160607
  Transmission Date: 20160815
  Serious: No
  Sender: FDA-Public Use
  Company Number: US-SA-2015SA186982

PATIENT
  Age: 54 Year
  Sex: Male

DRUGS (8)
  1. GABAPENTIN. [Concomitant]
     Active Substance: GABAPENTIN
  2. TOUJEO [Suspect]
     Active Substance: INSULIN GLARGINE
     Indication: TYPE 2 DIABETES MELLITUS
     Route: 065
     Dates: start: 20151112
  3. GLIPIZIDE. [Concomitant]
     Active Substance: GLIPIZIDE
  4. LIDOCAINE. [Concomitant]
     Active Substance: LIDOCAINE
  5. TOUJEO [Suspect]
     Active Substance: INSULIN GLARGINE
     Indication: TYPE 2 DIABETES MELLITUS
     Route: 065
  6. HUMALOG [Concomitant]
     Active Substance: INSULIN LISPRO
  7. SOLOSTAR [Concomitant]
     Active Substance: DEVICE
     Indication: DIABETES MELLITUS
     Dates: start: 20151112
  8. LANTUS [Concomitant]
     Active Substance: INSULIN GLARGINE
     Dates: start: 2015

REACTIONS (3)
  - Feeling jittery [Unknown]
  - Tremor [Unknown]
  - Blood glucose increased [Not Recovered/Not Resolved]
